FAERS Safety Report 9466766 (Version 2)
Quarter: 2014Q3

REPORT INFORMATION
  Report Type: Spontaneous
  Country: MX (occurrence: MX)
  Receive Date: 20130820
  Receipt Date: 20140810
  Transmission Date: 20150326
  Serious: Yes (Other)
  Sender: FDA-Public Use
  Company Number: PHHY2013MX089672

PATIENT
  Age: 81 Year
  Sex: Male

DRUGS (3)
  1. TEGRETOL [Suspect]
     Active Substance: CARBAMAZEPINE
     Indication: PARAESTHESIA
     Dosage: 200 MG, DAILY
     Route: 048
     Dates: start: 20120222, end: 201302
  2. VITAMIN B [Concomitant]
     Active Substance: VITAMIN B
     Dosage: 1 UKN, Q72H
  3. TEGRETOL [Suspect]
     Active Substance: CARBAMAZEPINE
     Dosage: 200 MG, DAILY (0.5 TABLET IN THE MORNIONG AND 0.5 TABLET AT NIGHT)
     Route: 048
     Dates: start: 201308

REACTIONS (4)
  - Leukaemia [Unknown]
  - Anaemia [Unknown]
  - Yellow skin [Unknown]
  - Asthenia [Unknown]

NARRATIVE: CASE EVENT DATE: 201212
